FAERS Safety Report 16084321 (Version 2)
Quarter: 2019Q1

REPORT INFORMATION
  Report Type: Report from Study
  Country: IL (occurrence: IL)
  Receive Date: 20190318
  Receipt Date: 20190328
  Transmission Date: 20190418
  Serious: Yes (Other)
  Sender: FDA-Public Use
  Company Number: IL-JNJFOC-20190230371

PATIENT
  Age: 30 Year
  Sex: Male

DRUGS (1)
  1. SIMPONI [Suspect]
     Active Substance: GOLIMUMAB
     Indication: COLITIS ULCERATIVE
     Route: 058
     Dates: start: 20190131

REACTIONS (7)
  - Off label use [Unknown]
  - Haematochezia [Unknown]
  - Injection site bruising [Recovered/Resolved]
  - Capillary fragility [Not Recovered/Not Resolved]
  - Injection site swelling [Recovered/Resolved]
  - Diarrhoea [Unknown]
  - Inappropriate schedule of product administration [Unknown]

NARRATIVE: CASE EVENT DATE: 2019
